FAERS Safety Report 18463709 (Version 2)
Quarter: 2020Q4

REPORT INFORMATION
  Report Type: Spontaneous
  Country: US (occurrence: US)
  Receive Date: 20201104
  Receipt Date: 20201106
  Transmission Date: 20210114
  Serious: No
  Sender: FDA-Public Use
  Company Number: US-SA-2020SA306540

PATIENT

DRUGS (1)
  1. LANTUS SOLOSTAR [Suspect]
     Active Substance: INSULIN GLARGINE
     Indication: LATENT AUTOIMMUNE DIABETES IN ADULTS
     Dosage: 14 UNITS EACH DAY
     Route: 065
     Dates: start: 2018

REACTIONS (5)
  - Product odour abnormal [Unknown]
  - Drug ineffective [Unknown]
  - Device leakage [Unknown]
  - Product quality issue [Unknown]
  - Blood glucose increased [Unknown]
